FAERS Safety Report 4932001-9 (Version None)
Quarter: 2006Q1

REPORT INFORMATION
  Report Type: 
  Country: None (occurrence: None)
  Receive Date: 20060303
  Receipt Date: 20060215
  Transmission Date: 20060701
  Serious: Yes (Death)
  Sender: FDA-Public Use
  Company Number: JP-JPN-A200600655

PATIENT
  Sex: Female

DRUGS (5)
  1. MODACIN [Suspect]
     Indication: DRUG USE FOR UNKNOWN INDICATION
     Dosage: 1G PER DAY
     Route: 042
     Dates: start: 20060126, end: 20060205
  2. TAMIFLU [Suspect]
     Route: 048
  3. VITAMIN A [Suspect]
     Route: 048
  4. NORVASC [Suspect]
     Route: 048
  5. ACETAMINOPHEN [Suspect]
     Route: 048

REACTIONS (2)
  - DEATH [None]
  - GENERALISED OEDEMA [None]
